FAERS Safety Report 7008245-1 (Version None)
Quarter: 2010Q3

REPORT INFORMATION
  Report Type: 
  Country: None (occurrence: None)
  Receive Date: 20100721
  Receipt Date: 20100430
  Transmission Date: 20110219
  Serious: No
  Sender: FDA-Public Use
  Company Number: LMI-2010-00352

PATIENT
  Age: 48 Year
  Sex: Male
  Weight: 99.7913 kg

DRUGS (14)
  1. ABLAVAR [Suspect]
     Indication: ARTERIOGRAM CAROTID
     Dosage: SEE IMAGE
     Route: 040
     Dates: start: 20100430, end: 20100430
  2. ABLAVAR [Suspect]
     Indication: VERTIGO
     Dosage: SEE IMAGE
     Route: 040
     Dates: start: 20100430, end: 20100430
  3. LODRANE (PSEUDOEPHEDRINE HYDROCHLORIDE, BROMPHENIRAMINE MALEATE) [Concomitant]
  4. LOTENSIN (CAPTOPRIL) [Concomitant]
  5. ANTIVERT [Concomitant]
  6. CELEXA [Concomitant]
  7. COGENTIN [Concomitant]
  8. RISPERDAL [Concomitant]
  9. DESYREL [Concomitant]
  10. DEPAKOTE [Concomitant]
  11. LANTUS [Concomitant]
  12. HUMULIN INSULIN (INSULIN HUMAN) [Concomitant]
  13. SINEQUAN [Concomitant]
  14. NORVASC [Concomitant]

REACTIONS (1)
  - BURNING SENSATION [None]
